FAERS Safety Report 5630896-7 (Version None)
Quarter: 2008Q1

REPORT INFORMATION
  Report Type: 
  Country: None (occurrence: None)
  Receive Date: 20080219
  Receipt Date: 20080214
  Transmission Date: 20080703
  Serious: Yes (Hospitalization, Other)
  Sender: FDA-Public Use
  Company Number: JP-ALLERGAN-0708551US

PATIENT
  Sex: Female
  Weight: 12.1 kg

DRUGS (6)
  1. ALESION SYRUP [Suspect]
     Indication: RHINITIS PERENNIAL
     Dosage: 0.4 G, QD
     Route: 048
     Dates: start: 20061129, end: 20070523
  2. ALESION SYRUP [Suspect]
     Dosage: 0.5 G, QD
     Route: 048
     Dates: start: 20070524, end: 20071106
  3. PRANLUKAST [Concomitant]
     Indication: ASTHMA
     Dosage: 0.8 G, UNK
     Route: 048
  4. MUCOSAL [Concomitant]
     Indication: ASTHMA
     Dosage: 0.7 G, UNK
     Route: 048
  5. MUCODYNE [Concomitant]
     Indication: ASTHMA
     Dosage: 0.7 G, UNK
     Route: 048
  6. HOKUNALIN [Concomitant]
     Indication: ASTHMA
     Dosage: 0.5 MG, UNK
     Route: 062

REACTIONS (4)
  - FEBRILE CONVULSION [None]
  - NASOPHARYNGITIS [None]
  - OTITIS MEDIA ACUTE [None]
  - UPPER RESPIRATORY TRACT INFLAMMATION [None]
